FAERS Safety Report 8054590-0 (Version None)
Quarter: 2012Q1

REPORT INFORMATION
  Report Type: 
  Country: None (occurrence: None)
  Receive Date: 20120119
  Receipt Date: 20120109
  Transmission Date: 20120608
  Serious: No
  Sender: FDA-Public Use
  Company Number: US-BIOGENIDEC-2011BI042034

PATIENT
  Sex: Female

DRUGS (2)
  1. AVONEX [Suspect]
     Route: 030
     Dates: start: 20110218, end: 20111015
  2. AVONEX [Suspect]
     Indication: MULTIPLE SCLEROSIS
     Route: 030

REACTIONS (9)
  - MULTIPLE SCLEROSIS RELAPSE [None]
  - FATIGUE [None]
  - WEIGHT DECREASED [None]
  - MUSCULAR WEAKNESS [None]
  - INTRAOCULAR PRESSURE TEST [None]
  - CENTRAL NERVOUS SYSTEM LESION [None]
  - BLADDER PAIN [None]
  - EYE PAIN [None]
  - ANXIETY [None]
